FAERS Safety Report 22007602 (Version 3)
Quarter: 2023Q1

REPORT INFORMATION
  Report Type: Spontaneous
  Country: CA (occurrence: CA)
  Receive Date: 20230218
  Receipt Date: 20230327
  Transmission Date: 20230418
  Serious: Yes (Other)
  Sender: FDA-Public Use
  Company Number: CA-CELLTRION INC.-2023CA003579

PATIENT

DRUGS (6)
  1. INFLECTRA [Suspect]
     Active Substance: INFLIXIMAB-DYYB
     Indication: Crohn^s disease
     Dosage: 1 DF ,HOSPITAL START, DOSAGE INFORMATION UNKNOWN
     Route: 042
     Dates: start: 20230203, end: 20230203
  2. INFLECTRA [Suspect]
     Active Substance: INFLIXIMAB-DYYB
     Dosage: 5 MG/KG, WEEKS 2, 6 THEN EVERY 8 WEEKS
     Route: 042
     Dates: start: 20230217, end: 20230217
  3. INFLECTRA [Suspect]
     Active Substance: INFLIXIMAB-DYYB
     Dosage: 600 MG (10 MG/KG, WEEK 6 THEN EVERY 8 WEEKS)
     Route: 042
     Dates: start: 20230317
  4. METRONIDAZOLE [Concomitant]
     Active Substance: METRONIDAZOLE
     Dosage: 1 DF
  5. PREDNISONE [Concomitant]
     Active Substance: PREDNISONE
     Dosage: 1 DF
  6. PRO CIPROFLOXACIN [Concomitant]
     Dosage: UNK

REACTIONS (4)
  - Condition aggravated [Not Recovered/Not Resolved]
  - Off label use [Unknown]
  - Fistula [Recovered/Resolved]
  - Abscess [Unknown]

NARRATIVE: CASE EVENT DATE: 20230203
